FAERS Safety Report 4495937-1 (Version None)
Quarter: 2004Q4

REPORT INFORMATION
  Report Type: 
  Country: None (occurrence: None)
  Receive Date: 20041108
  Receipt Date: 20041102
  Transmission Date: 20050328
  Serious: Yes (Other)
  Sender: FDA-Public Use
  Company Number: US-BRISTOL-MYERS SQUIBB COMPANY-12753679

PATIENT
  Age: 37 Year
  Sex: Female
  Weight: 104 kg

DRUGS (6)
  1. EXCEDRIN ES TABS [Suspect]
     Indication: MYALGIA
     Route: 048
     Dates: start: 20040720, end: 20041102
  2. DIAZEPAM [Concomitant]
  3. PREVACID [Concomitant]
  4. SOMA [Concomitant]
  5. VICODIN ES [Concomitant]
  6. NEURONTIN [Concomitant]

REACTIONS (3)
  - CONVULSION [None]
  - CYANOSIS [None]
  - PHARMACEUTICAL PRODUCT COMPLAINT [None]
